FAERS Safety Report 8025397-5 (Version None)
Quarter: 2011Q4

REPORT INFORMATION
  Report Type: 
  Country: None (occurrence: None)
  Receive Date: 20111130
  Receipt Date: 20110914
  Transmission Date: 20120403
  Serious: Yes (Other)
  Sender: FDA-Public Use
  Company Number: PHHY2011US63975

PATIENT
  Sex: Female

DRUGS (7)
  1. JANUVIA [Concomitant]
  2. AMLODIPINE BESYLATE [Concomitant]
  3. ASPIRIN [Concomitant]
  4. COQ10 (UBIDECARENONE) [Concomitant]
  5. VITAMIN TAB [Concomitant]
  6. TEKTURNA [Suspect]
     Dosage: 300 MG, DAILY
  7. NOVASIC [Concomitant]

REACTIONS (3)
  - THERAPEUTIC RESPONSE DECREASED [None]
  - PRODUCT PHYSICAL ISSUE [None]
  - BLOOD PRESSURE INCREASED [None]
